FAERS Safety Report 9226330 (Version 1)
Quarter: 2013Q2

REPORT INFORMATION
  Report Type: Spontaneous
  Country: US (occurrence: US)
  Receive Date: 20130411
  Receipt Date: 20130411
  Transmission Date: 20140414
  Serious: Yes (Other)
  Sender: FDA-Public Use
  Company Number: US-LUNDBECK-DKLU1090077

PATIENT
  Sex: Male

DRUGS (2)
  1. ONFI [Suspect]
     Indication: CONVULSION
     Dates: start: 20130401
  2. ONFI [Suspect]
     Indication: LENNOX-GASTAUT SYNDROME

REACTIONS (2)
  - Psychotic disorder [Unknown]
  - Mood swings [Unknown]
